FAERS Safety Report 21057959 (Version 1)
Quarter: 2022Q3

REPORT INFORMATION
  Report Type: Spontaneous
  Country: US (occurrence: None)
  Receive Date: 20220708
  Receipt Date: 20220708
  Transmission Date: 20221026
  Serious: Yes (unspecified)
  Sender: FDA-Public Use
  Company Number: None

PATIENT
  Age: 67 Year
  Sex: Female
  Weight: 24.57 kg

DRUGS (1)
  1. DOCETAXEL [Suspect]
     Active Substance: DOCETAXEL
     Indication: Breast cancer
     Dosage: FREQUENCY : EVERY THREE WEEKS;?
     Route: 041
     Dates: start: 20220524

REACTIONS (3)
  - Flushing [None]
  - Dyspepsia [None]
  - Infusion related reaction [None]

NARRATIVE: CASE EVENT DATE: 20220705
